FAERS Safety Report 9940478 (Version 2)
Quarter: 2014Q1

REPORT INFORMATION
  Report Type: Spontaneous
  Country: FR (occurrence: FR)
  Receive Date: 20140303
  Receipt Date: 20140303
  Transmission Date: 20141002
  Serious: Yes (Hospitalization, Other)
  Sender: FDA-Public Use
  Company Number: FR-PFIZER INC-2014046969

PATIENT
  Age: 20 Year
  Sex: Female

DRUGS (3)
  1. ADEPAL [Suspect]
     Indication: CONTRACEPTION
     Dosage: UNK
     Route: 048
     Dates: start: 200811, end: 20130409
  2. LEVOTHYROX [Suspect]
     Indication: THYROIDITIS
     Dosage: UNK
     Route: 048
     Dates: start: 20130405, end: 20130409
  3. PROPRANOLOL [Concomitant]
     Indication: TACHYCARDIA
     Dosage: 20 MG, 2X/DAY
     Route: 048
     Dates: start: 20130408, end: 2013

REACTIONS (2)
  - Pulmonary embolism [Recovered/Resolved]
  - Thyroiditis [Unknown]
